FAERS Safety Report 8142764-X (Version None)
Quarter: 2012Q1

REPORT INFORMATION
  Report Type: 
  Country: None (occurrence: None)
  Receive Date: 20120216
  Receipt Date: 20120208
  Transmission Date: 20120608
  Serious: Yes (Hospitalization)
  Sender: FDA-Public Use
  Company Number: BE-ABBOTT-12P-013-0902267-00

PATIENT
  Sex: Female

DRUGS (2)
  1. HUMIRA [Suspect]
     Indication: ANKYLOSING SPONDYLITIS
     Dates: start: 20100715
  2. EPSIPAM [Concomitant]
     Indication: HYPERTONIA

REACTIONS (3)
  - CARPAL TUNNEL SYNDROME [None]
  - ASTHENIA [None]
  - PARAESTHESIA [None]
